FAERS Safety Report 7625764-5 (Version None)
Quarter: 2011Q3

REPORT INFORMATION
  Report Type: 
  Country: None (occurrence: None)
  Receive Date: 20110713
  Receipt Date: 20110704
  Transmission Date: 20111222
  Serious: Yes (Other)
  Sender: FDA-Public Use
  Company Number: 2011SP031152

PATIENT
  Age: 49 Year
  Sex: Male
  Weight: 69 kg

DRUGS (4)
  1. RIBAVIRIN [Suspect]
     Indication: HEPATITIS C
     Dosage: ; QD; PO
     Route: 048
     Dates: start: 20110501
  2. EPOGEN [Concomitant]
  3. PEGINTERFERON ALFA-2B [Suspect]
     Indication: HEPATITIS C
     Dosage: 80 MCG; SC
     Route: 058
     Dates: start: 20110101
  4. PEGINTERFERON ALFA-2B [Suspect]
     Indication: HEPATITIS C
     Dosage: 80 MCG; SC
     Route: 058
     Dates: start: 20110501, end: 20110601

REACTIONS (5)
  - LIVER TRANSPLANT REJECTION [None]
  - ASTHENIA [None]
  - VOMITING [None]
  - DIARRHOEA [None]
  - HEADACHE [None]
